FAERS Safety Report 6694049-6 (Version None)
Quarter: 2010Q2

REPORT INFORMATION
  Report Type: 
  Country: None (occurrence: None)
  Receive Date: 20100423
  Receipt Date: 20100412
  Transmission Date: 20101027
  Serious: Yes (Other)
  Sender: FDA-Public Use
  Company Number: RU-JNJFOC-20100404776

PATIENT
  Age: 17 Year
  Sex: Male

DRUGS (5)
  1. INFLIXIMAB [Suspect]
     Indication: COLITIS ULCERATIVE
     Dosage: 2ND INDUCTION DOSE
     Route: 042
  2. INFLIXIMAB [Suspect]
     Route: 042
  3. INFLIXIMAB [Suspect]
     Dosage: ONE DOSE
     Route: 042
  4. MEROPENEM [Concomitant]
  5. PREDNISOLONE [Concomitant]
     Indication: PREMEDICATION
     Route: 042

REACTIONS (4)
  - CONVULSION [None]
  - INFUSION RELATED REACTION [None]
  - PYREXIA [None]
  - TYPE IV HYPERSENSITIVITY REACTION [None]
